FAERS Safety Report 9192501 (Version 3)
Quarter: 2013Q3

REPORT INFORMATION
  Report Type: Spontaneous
  Country: US (occurrence: US)
  Receive Date: 20130327
  Receipt Date: 20130820
  Transmission Date: 20140515
  Serious: Yes (Other)
  Sender: FDA-Public Use
  Company Number: US-PFIZER INC-2013095931

PATIENT
  Sex: Female

DRUGS (1)
  1. LYRICA [Suspect]
     Dosage: 2 DAY @ 225 MG
     Dates: start: 20100301

REACTIONS (4)
  - Hallucination [Unknown]
  - Delirium [Unknown]
  - Depression [Unknown]
  - Drug ineffective [Unknown]
